FAERS Safety Report 14899582 (Version 1)
Quarter: 2018Q2

REPORT INFORMATION
  Report Type: Report from Study
  Country: ES (occurrence: ES)
  Receive Date: 20180516
  Receipt Date: 20180516
  Transmission Date: 20180711
  Serious: Yes (Hospitalization)
  Sender: FDA-Public Use
  Company Number: ES-TEVA-2018-ES-893541

PATIENT
  Age: 11 Year
  Sex: Female

DRUGS (4)
  1. HALOPERIDOL 2 MG/ML SOLUTION/SUSPENSION ORAL DROPS [Suspect]
     Active Substance: HALOPERIDOL
     Dosage: 10 GOTAS /24? SOLUTION/SUSPENSION ORAL DROPS
     Dates: start: 201509
  2. EUTIROX [Concomitant]
     Active Substance: LEVOTHYROXINE SODIUM
     Indication: HYPOTHYROIDISM
     Route: 065
     Dates: start: 2015
  3. DEPAKINE [Suspect]
     Active Substance: VALPROATE SODIUM
     Indication: GENERALISED NON-CONVULSIVE EPILEPSY
     Route: 065
     Dates: start: 201509
  4. RISPERIDONA (7201A) [Suspect]
     Active Substance: RISPERIDONE
     Route: 065
     Dates: start: 2015

REACTIONS (1)
  - Hyperammonaemic encephalopathy [Unknown]

NARRATIVE: CASE EVENT DATE: 20160912
